FAERS Safety Report 19732186 (Version 1)
Quarter: 2021Q3

REPORT INFORMATION
  Report Type: Spontaneous
  Country: US (occurrence: US)
  Receive Date: 20210820
  Receipt Date: 20210820
  Transmission Date: 20211014
  Serious: No
  Sender: FDA-Public Use
  Company Number: None

PATIENT
  Sex: Female

DRUGS (1)
  1. TECFIDERA [Suspect]
     Active Substance: DIMETHYL FUMARATE
     Indication: CONGENITAL MITRAL VALVE STENOSIS
     Route: 048
     Dates: start: 201603, end: 202104

REACTIONS (1)
  - Hepatic cirrhosis [None]
